FAERS Safety Report 6036159-2 (Version None)
Quarter: 2009Q1

REPORT INFORMATION
  Report Type: 
  Country: None (occurrence: None)
  Receive Date: 20090113
  Receipt Date: 20090101
  Transmission Date: 20090719
  Serious: No
  Sender: FDA-Public Use
  Company Number: US-B.I. PHARMACEUTICALS,INC./RIDGEFIELD-2009-BP-00090BP

PATIENT
  Sex: Female

DRUGS (3)
  1. MIRAPEX [Suspect]
     Indication: PARKINSON'S DISEASE
     Dosage: 1.5MG
     Route: 048
     Dates: start: 20080101
  2. CARBIDOPA [Suspect]
     Indication: PARKINSON'S DISEASE
  3. LEVODOPA [Suspect]
     Indication: PARKINSON'S DISEASE

REACTIONS (1)
  - GAIT DISTURBANCE [None]
